FAERS Safety Report 13355929 (Version 2)
Quarter: 2017Q1

REPORT INFORMATION
  Report Type: Spontaneous
  Country: IT (occurrence: IT)
  Receive Date: 20170321
  Receipt Date: 20170323
  Transmission Date: 20170429
  Serious: Yes (Other)
  Sender: FDA-Public Use
  Company Number: IT-SA-2017SA043556

PATIENT
  Age: 85 Year
  Sex: Male

DRUGS (5)
  1. CLEXANE [Suspect]
     Active Substance: ENOXAPARIN SODIUM
     Indication: THROMBOSIS PROPHYLAXIS
     Route: 058
     Dates: start: 20151022, end: 20151025
  2. ARVENUM [Suspect]
     Active Substance: DIOSMIN
     Indication: PERIPHERAL VENOUS DISEASE
     Dosage: DOSE:2 UNIT(S)
     Route: 048
     Dates: start: 20151022, end: 20151025
  3. CLEXANE [Suspect]
     Active Substance: ENOXAPARIN SODIUM
     Indication: THROMBOSIS PROPHYLAXIS
     Route: 058
     Dates: start: 20151022, end: 20151025
  4. HIRUDOID [Suspect]
     Active Substance: GLYCOSAMINOGLYCANS
     Indication: THROMBOPHLEBITIS
     Dosage: DOSE:1 UNIT(S)
     Route: 061
     Dates: start: 20151022, end: 20151025
  5. ARVENUM [Suspect]
     Active Substance: DIOSMIN
     Indication: PERIPHERAL VENOUS DISEASE
     Dosage: DOSE:2 UNIT(S)
     Route: 048
     Dates: start: 20151022, end: 20151025

REACTIONS (1)
  - Swelling [Recovering/Resolving]

NARRATIVE: CASE EVENT DATE: 20151025
